FAERS Safety Report 5713468-5 (Version None)
Quarter: 2008Q2

REPORT INFORMATION
  Report Type: 
  Country: None (occurrence: None)
  Receive Date: 20080422
  Receipt Date: 20080410
  Transmission Date: 20081010
  Serious: Yes (Life-Threatening)
  Sender: FDA-Public Use
  Company Number: AU-PFIZER INC-2008032305

PATIENT
  Sex: Female

DRUGS (1)
  1. CHAMPIX [Suspect]
     Indication: SMOKER
     Route: 048
     Dates: start: 20080103, end: 20080315

REACTIONS (4)
  - AGITATION [None]
  - NEGATIVE THOUGHTS [None]
  - SUICIDE ATTEMPT [None]
  - TREMOR [None]
